FAERS Safety Report 5603089-7 (Version None)
Quarter: 2008Q1

REPORT INFORMATION
  Report Type: 
  Country: None (occurrence: None)
  Receive Date: 20080125
  Receipt Date: 20080114
  Transmission Date: 20080703
  Serious: Yes (Other)
  Sender: FDA-Public Use
  Company Number: CA-PFIZER INC-2007106595

PATIENT
  Sex: Female

DRUGS (7)
  1. CHANTIX [Suspect]
     Indication: EX-SMOKER
     Route: 048
  2. PREVACID [Concomitant]
     Route: 048
  3. LIPITOR [Concomitant]
     Route: 048
  4. SPIRIVA [Concomitant]
     Route: 055
  5. DILTIAZEM HCL [Concomitant]
     Route: 048
  6. SYMBICORT [Concomitant]
     Route: 055
  7. VALSARTAN [Concomitant]
     Route: 048

REACTIONS (2)
  - FAECES DISCOLOURED [None]
  - ULCER [None]
